FAERS Safety Report 7350623-5 (Version None)
Quarter: 2011Q1

REPORT INFORMATION
  Report Type: 
  Country: None (occurrence: None)
  Receive Date: 20110222
  Receipt Date: 20101115
  Transmission Date: 20110831
  Serious: No
  Sender: FDA-Public Use
  Company Number: 022171

PATIENT
  Sex: Female
  Weight: 103.4 kg

DRUGS (5)
  1. KLONOPIN [Concomitant]
  2. REQUIP [Concomitant]
  3. LACOSAMIDE [Suspect]
     Indication: CONVULSION
     Dosage: (150 MG BID ORAL)
     Route: 048
     Dates: start: 20100101
  4. KEPPRA [Suspect]
     Indication: CONVULSION
     Dosage: (2500 MG, 100MG PM, 1500MG AM)
     Dates: end: 20101001
  5. CYMBALTA [Concomitant]

REACTIONS (8)
  - MEMORY IMPAIRMENT [None]
  - ABDOMINAL PAIN [None]
  - DIZZINESS [None]
  - SOMNOLENCE [None]
  - DEPRESSION [None]
  - PARANOIA [None]
  - BALANCE DISORDER [None]
  - CRYING [None]
